FAERS Safety Report 5865932-6 (Version None)
Quarter: 2008Q3

REPORT INFORMATION
  Report Type: 
  Country: None (occurrence: None)
  Receive Date: 20080829
  Receipt Date: 20080821
  Transmission Date: 20090109
  Serious: Yes (Other)
  Sender: FDA-Public Use
  Company Number: US-AMGEN-QUU303260

PATIENT
  Sex: Male

DRUGS (3)
  1. ENBREL [Suspect]
     Indication: PSORIASIS
     Route: 058
     Dates: start: 20050501
  2. ENBREL [Suspect]
     Indication: PSORIATIC ARTHROPATHY
  3. PLAVIX [Concomitant]

REACTIONS (4)
  - BLOOD TRIGLYCERIDES INCREASED [None]
  - EPISTAXIS [None]
  - HAEMOGLOBIN DECREASED [None]
  - PULMONARY FIBROSIS [None]
